FAERS Safety Report 4652860-7 (Version None)
Quarter: 2005Q2

REPORT INFORMATION
  Report Type: 
  Country: None (occurrence: None)
  Receive Date: 20050502
  Receipt Date: 20050329
  Transmission Date: 20051028
  Serious: No
  Sender: FDA-Public Use
  Company Number: 10675

PATIENT
  Age: 17 Year
  Sex: Female

DRUGS (5)
  1. METHOTREXATE [Suspect]
     Indication: BONE SARCOMA
     Dosage: 12 G/M2 PER_CYCLE
  2. DOXORUBICIN HCL [Concomitant]
  3. LEUCOVORIN CALCIUM [Concomitant]
  4. ONDANSETRON [Concomitant]
  5. IFOSFAMIDE [Concomitant]

REACTIONS (2)
  - BLISTER [None]
  - ERYTHEMA [None]
